FAERS Safety Report 25012076 (Version 1)
Quarter: 2025Q1

REPORT INFORMATION
  Report Type: Spontaneous
  Country: US (occurrence: US)
  Receive Date: 20250226
  Receipt Date: 20250226
  Transmission Date: 20250409
  Serious: No
  Sender: Haleon PLC
  Company Number: US-HALEON-2229904

PATIENT
  Age: 63 Year
  Sex: Female

DRUGS (2)
  1. SENSODYNE ADVANCED WHITENING [Suspect]
     Active Substance: POTASSIUM NITRATE\SODIUM FLUORIDE
     Indication: Product used for unknown indication
  2. SENSODYNE REPAIR AND PROTECT [Suspect]
     Active Substance: STANNOUS FLUORIDE
     Indication: Product used for unknown indication

REACTIONS (2)
  - Headache [Recovered/Resolved]
  - Dermatitis contact [Unknown]
